FAERS Safety Report 9193530 (Version 1)
Quarter: 2013Q1

REPORT INFORMATION
  Report Type: Spontaneous
  Country: US (occurrence: None)
  Receive Date: 20130325
  Receipt Date: 20130325
  Transmission Date: 20140127
  Serious: Yes (Other)
  Sender: FDA-Public Use
  Company Number: None

PATIENT
  Age: 84 Year
  Sex: Male

DRUGS (1)
  1. TARCEVA [Suspect]
     Route: 048
     Dates: start: 20130226, end: 20130322

REACTIONS (1)
  - Epistaxis [None]
